FAERS Safety Report 13815272 (Version 1)
Quarter: 2017Q3

REPORT INFORMATION
  Report Type: Spontaneous
  Country: US (occurrence: US)
  Receive Date: 20170729
  Receipt Date: 20170729
  Transmission Date: 20171127
  Serious: No
  Sender: FDA-Public Use
  Company Number: None

PATIENT
  Age: 31 Year
  Sex: Female

DRUGS (1)
  1. NUVARING [Suspect]
     Active Substance: ETHINYL ESTRADIOL\ETONOGESTREL
     Indication: MENSTRUAL DISORDER
     Dosage: ?          QUANTITY:1 PER MONTH;OTHER FREQUENCY:MONTHLY;?
     Route: 067
     Dates: start: 20170701, end: 20170729

REACTIONS (5)
  - Product odour abnormal [None]
  - Discomfort [None]
  - Haemorrhage [None]
  - Device colour issue [None]
  - Device dislocation [None]

NARRATIVE: CASE EVENT DATE: 20170729
